FAERS Safety Report 7290268-9 (Version None)
Quarter: 2011Q1

REPORT INFORMATION
  Report Type: 
  Country: None (occurrence: None)
  Receive Date: 20110201
  Receipt Date: 20110115
  Transmission Date: 20110831
  Serious: Yes (Hospitalization, Other)
  Sender: FDA-Public Use
  Company Number: 2011AP000055

PATIENT
  Age: 85 Year
  Sex: Male

DRUGS (6)
  1. FENTANYL [Suspect]
     Indication: BACK PAIN
     Dosage: 75 UG;QH;IV ; 25 UG;QH;IV
     Route: 042
  2. FENTANYL [Suspect]
     Indication: MUSCULOSKELETAL CHEST PAIN
     Dosage: 75 UG;QH;IV ; 25 UG;QH;IV
     Route: 042
  3. PIPERACILLIN W/TAZOBACTAM /01606301/ [Concomitant]
  4. OXYCODONE [Concomitant]
  5. VANCOMYCIN [Concomitant]
  6. DILTIAZEM [Suspect]
     Indication: TACHYCARDIA

REACTIONS (6)
  - SUPRAVENTRICULAR TACHYCARDIA [None]
  - PNEUMONIA [None]
  - URINARY TRACT INFECTION [None]
  - DELIRIUM [None]
  - DRUG INTERACTION [None]
  - CLOSTRIDIUM DIFFICILE COLITIS [None]
